FAERS Safety Report 4913694-9 (Version None)
Quarter: 2006Q1

REPORT INFORMATION
  Report Type: 
  Country: None (occurrence: None)
  Receive Date: 20060214
  Receipt Date: 20060214
  Transmission Date: 20060701
  Serious: Yes (Hospitalization)
  Sender: FDA-Public Use
  Company Number: None

PATIENT
  Sex: Female
  Weight: 50.8029 kg

DRUGS (3)
  1. FLUOROURACIL [Suspect]
     Indication: COLON CANCER
     Dosage: 5929 MG
     Dates: start: 20060125
  2. LEUCOVORIN CALCIUM [Suspect]
     Dosage: 865 MG
     Dates: start: 20060125
  3. OXALIPLATIN [Suspect]
     Dosage: 179 MG
     Dates: start: 20060125

REACTIONS (6)
  - ANXIETY [None]
  - DEEP VEIN THROMBOSIS [None]
  - DYSPNOEA [None]
  - PALPITATIONS [None]
  - PULMONARY EMBOLISM [None]
  - THROAT TIGHTNESS [None]
